FAERS Safety Report 18299792 (Version 1)
Quarter: 2020Q3

REPORT INFORMATION
  Report Type: Spontaneous
  Country: US (occurrence: US)
  Receive Date: 20200923
  Receipt Date: 20200923
  Transmission Date: 20201103
  Serious: No
  Sender: FDA-Public Use
  Company Number: US-B.I. PHARMACEUTICALS,INC./RIDGEFIELD-2020-BI-049983

PATIENT
  Age: 67 Year
  Sex: Female

DRUGS (2)
  1. SPIRIVA RESPIMAT [Suspect]
     Active Substance: TIOTROPIUM BROMIDE
     Indication: EMPHYSEMA
     Dosage: 2.5 MCG 2 INHALATIONS QD
     Dates: start: 20200901
  2. WELLBUTRIN [Concomitant]
     Active Substance: BUPROPION HYDROCHLORIDE
     Indication: DEPRESSION
     Dosage: 100MG QD

REACTIONS (2)
  - Dry mouth [Not Recovered/Not Resolved]
  - Paraesthesia oral [Not Recovered/Not Resolved]

NARRATIVE: CASE EVENT DATE: 20200917
